FAERS Safety Report 19051789 (Version 1)
Quarter: 2021Q1

REPORT INFORMATION
  Report Type: Spontaneous
  Country: BR (occurrence: BR)
  Receive Date: 20210324
  Receipt Date: 20210324
  Transmission Date: 20210420
  Serious: Yes (Other)
  Sender: FDA-Public Use
  Company Number: BR-JNJFOC-20210331902

PATIENT
  Age: 20 Year
  Sex: Female

DRUGS (3)
  1. BIO?MANGUINHOS INFLIXIMABE [Suspect]
     Active Substance: INFLIXIMAB
     Route: 042
     Dates: start: 20210310
  2. BIO?MANGUINHOS INFLIXIMABE [Suspect]
     Active Substance: INFLIXIMAB
     Indication: CROHN^S DISEASE
     Route: 042
     Dates: start: 2018
  3. FLEBOCORTID [Suspect]
     Active Substance: HYDROCORTISONE SODIUM SUCCINATE
     Indication: PREMEDICATION
     Route: 065
     Dates: start: 20210310

REACTIONS (8)
  - Cough [Recovered/Resolved]
  - Infusion related reaction [Recovered/Resolved]
  - Musculoskeletal stiffness [Recovered/Resolved]
  - Cyanosis [Recovered/Resolved]
  - Chest discomfort [Recovered/Resolved]
  - Dyspnoea [Recovered/Resolved]
  - Rash [Recovered/Resolved]
  - Loss of consciousness [Recovered/Resolved]

NARRATIVE: CASE EVENT DATE: 20210310
